FAERS Safety Report 5328776-X (Version None)
Quarter: 2007Q2

REPORT INFORMATION
  Report Type: 
  Country: None (occurrence: None)
  Receive Date: 20070516
  Receipt Date: 20070516
  Transmission Date: 20071010
  Serious: Yes (Hospitalization)
  Sender: FDA-Public Use
  Company Number: None

PATIENT
  Sex: Male
  Weight: 84 kg

DRUGS (1)
  1. CISPLATIN [Suspect]
     Dosage: 167 MG

REACTIONS (8)
  - CATHETER THROMBOSIS [None]
  - DEEP VEIN THROMBOSIS [None]
  - DILATATION VENTRICULAR [None]
  - EMBOLISM [None]
  - MYOCARDIAL INFARCTION [None]
  - PELVIC VENOUS THROMBOSIS [None]
  - PERIPHERAL ISCHAEMIA [None]
  - PULMONARY EMBOLISM [None]
